FAERS Safety Report 18667063 (Version 1)
Quarter: 2020Q4

REPORT INFORMATION
  Report Type: Spontaneous
  Country: US (occurrence: US)
  Receive Date: 20201228
  Receipt Date: 20201228
  Transmission Date: 20210114
  Serious: No
  Sender: FDA-Public Use
  Company Number: US-009507513-2012USA009718

PATIENT
  Age: 70 Year
  Sex: Female

DRUGS (3)
  1. ASMANEX HFA [Suspect]
     Active Substance: MOMETASONE FUROATE
     Indication: ASTHMA
     Dosage: 2 DOSAGE FORM, BID
     Dates: start: 2019
  2. ASMANEX HFA [Suspect]
     Active Substance: MOMETASONE FUROATE
     Indication: ASTHMA
     Dosage: 2 PUFFS BID
     Dates: start: 202011
  3. PROVENTIL [Concomitant]
     Active Substance: ALBUTEROL
     Dosage: UNK

REACTIONS (6)
  - Chest discomfort [Not Recovered/Not Resolved]
  - Poor quality device used [Unknown]
  - Device malfunction [Unknown]
  - Expired product administered [Unknown]
  - Device malfunction [Unknown]
  - Poor quality device used [Unknown]

NARRATIVE: CASE EVENT DATE: 202010
